FAERS Safety Report 7672759-1 (Version None)
Quarter: 2011Q3

REPORT INFORMATION
  Report Type: 
  Country: None (occurrence: None)
  Receive Date: 20110809
  Receipt Date: 20110725
  Transmission Date: 20111222
  Serious: Yes (Other)
  Sender: FDA-Public Use
  Company Number: JP-WATSON-2011-12280

PATIENT
  Age: 60 Year
  Sex: Male

DRUGS (1)
  1. TOLBUTAMIDE [Suspect]
     Indication: DIABETES MELLITUS

REACTIONS (1)
  - GRANULOMA ANNULARE [None]
